FAERS Safety Report 12468461 (Version 1)
Quarter: 2016Q2

REPORT INFORMATION
  Report Type: Report from Study
  Country: CA (occurrence: CA)
  Receive Date: 20160615
  Receipt Date: 20160615
  Transmission Date: 20160815
  Serious: Yes (Hospitalization, Other)
  Sender: FDA-Public Use
  Company Number: CA-TAKEDA-2015TUS010380

PATIENT
  Age: 20 Year
  Sex: Female

DRUGS (7)
  1. CALCIUM W/IRON SUPPLEMENT [Concomitant]
     Dosage: UNK
     Route: 065
  2. VEDOLIZUMAB [Suspect]
     Active Substance: VEDOLIZUMAB
     Indication: COLITIS ULCERATIVE
     Dosage: 300 MG, UNK
     Route: 042
     Dates: start: 20150626, end: 20160317
  3. PANTOLOC [Suspect]
     Active Substance: PANTOPRAZOLE SODIUM
     Indication: PRODUCT USED FOR UNKNOWN INDICATION
     Dosage: UNK
     Route: 065
  4. PREDNISONE. [Concomitant]
     Active Substance: PREDNISONE
     Dosage: 20 MG, QD
     Dates: start: 2015
  5. ZARAH [Concomitant]
     Active Substance: DROSPIRENONE\ETHINYL ESTRADIOL
     Dosage: UNK
     Route: 065
  6. VEDOLIZUMAB [Suspect]
     Active Substance: VEDOLIZUMAB
     Dosage: 300 MG, UNK
     Route: 042
     Dates: start: 20160428
  7. METHYLPREDNISOLONE. [Concomitant]
     Active Substance: METHYLPREDNISOLONE
     Indication: PREMEDICATION
     Dosage: 80 MG, UNK
     Route: 042
     Dates: start: 20150626

REACTIONS (17)
  - Oropharyngeal pain [Recovering/Resolving]
  - Drug ineffective [Unknown]
  - Colitis ulcerative [Unknown]
  - Migraine [Recovering/Resolving]
  - Diplopia [Unknown]
  - Dizziness [Unknown]
  - Cough [Recovering/Resolving]
  - Off label use [Unknown]
  - Viral infection [Unknown]
  - Rhinorrhoea [Recovering/Resolving]
  - Abdominal pain [Recovered/Resolved]
  - Rectal tenesmus [Unknown]
  - Toothache [Unknown]
  - Blood pressure decreased [Unknown]
  - Haematochezia [Unknown]
  - Headache [Unknown]
  - Nausea [Unknown]

NARRATIVE: CASE EVENT DATE: 2015
